FAERS Safety Report 20187947 (Version 1)
Quarter: 2021Q4

REPORT INFORMATION
  Report Type: Spontaneous
  Country: US (occurrence: US)
  Receive Date: 20211215
  Receipt Date: 20211215
  Transmission Date: 20220303
  Serious: Yes (Other)
  Sender: FDA-Public Use
  Company Number: US-PURDUE-USA-2020-0171516

PATIENT
  Sex: Female

DRUGS (2)
  1. HYDROCODONE BITARTRATE [Suspect]
     Active Substance: HYDROCODONE BITARTRATE
     Indication: Back pain
     Dosage: 7.5 MG, BID
     Route: 048
     Dates: start: 2006
  2. ACETAMINOPHEN\OXYCODONE HYDROCHLORIDE\OXYCODONE TEREPHTHALATE [Suspect]
     Active Substance: ACETAMINOPHEN\OXYCODONE HYDROCHLORIDE\OXYCODONE TEREPHTHALATE
     Indication: Back pain
     Dosage: 10 MG, TWO TO THREE TIMES DAILY OR MORE
     Route: 048
     Dates: end: 2019

REACTIONS (2)
  - Drug dependence [Unknown]
  - Mood altered [Unknown]
